FAERS Safety Report 20692964 (Version 1)
Quarter: 2022Q2

REPORT INFORMATION
  Report Type: Report from Study
  Country: US (occurrence: US)
  Receive Date: 20220410
  Receipt Date: 20220410
  Transmission Date: 20220721
  Serious: Yes (Other)
  Sender: FDA-Public Use
  Company Number: US-JNJFOC-20220400022

PATIENT

DRUGS (2)
  1. RISPERDAL [Suspect]
     Active Substance: RISPERIDONE
     Indication: Dementia
     Route: 065
  2. HALOPERIDOL [Suspect]
     Active Substance: HALOPERIDOL
     Indication: Dementia
     Route: 065

REACTIONS (16)
  - Transient ischaemic attack [Unknown]
  - Cerebrovascular accident [Unknown]
  - Hip fracture [Unknown]
  - Seizure [Unknown]
  - Akinesia [Unknown]
  - Tardive dyskinesia [Unknown]
  - Apathy [Unknown]
  - Anxiety [Unknown]
  - Akathisia [Unknown]
  - Muscle rigidity [Unknown]
  - Somnolence [Unknown]
  - Dizziness [Unknown]
  - Weight decreased [Unknown]
  - Weight increased [Unknown]
  - Constipation [Unknown]
  - Dry mouth [Unknown]
